FAERS Safety Report 18217135 (Version 1)
Quarter: 2020Q3

REPORT INFORMATION
  Report Type: Spontaneous
  Country: CO (occurrence: CO)
  Receive Date: 20200901
  Receipt Date: 20200901
  Transmission Date: 20201103
  Serious: Yes (Other)
  Sender: FDA-Public Use
  Company Number: CO-GLAXOSMITHKLINE-CO2020AMR157964

PATIENT
  Age: 40 Year
  Sex: Female
  Weight: 74 kg

DRUGS (5)
  1. SALBUTAMOL [Suspect]
     Active Substance: ALBUTEROL
     Indication: CHEST PAIN
     Dosage: 2 PUFF(S), Z, EVERY 30 MIN
  2. TIOTROPIUM BROMIDE [Concomitant]
     Active Substance: TIOTROPIUM BROMIDE
     Indication: PRODUCT USED FOR UNKNOWN INDICATION
     Dosage: 2 PUFF(S), QD, EVERY 24 HOURS
  3. MEPOLIZUMAB [Suspect]
     Active Substance: MEPOLIZUMAB
     Indication: ASTHMA
     Dosage: 100 MG, Z, MONTH
     Route: 058
  4. SALBUTAMOL [Suspect]
     Active Substance: ALBUTEROL
     Indication: DYSPNOEA
  5. MONTELUKAST [Concomitant]
     Active Substance: MONTELUKAST SODIUM
     Indication: PRODUCT USED FOR UNKNOWN INDICATION
     Dosage: 10 MG, QD,EVERY 24 HOURS

REACTIONS (4)
  - Dyspnoea [Unknown]
  - Product use issue [Unknown]
  - Chest pain [Unknown]
  - Asthmatic crisis [Recovered/Resolved]

NARRATIVE: CASE EVENT DATE: 20200811
